FAERS Safety Report 9454717 (Version 1)
Quarter: 2013Q3

REPORT INFORMATION
  Report Type: Spontaneous
  Country: US (occurrence: None)
  Receive Date: 20130808
  Receipt Date: 20130808
  Transmission Date: 20140515
  Serious: Yes (Death, Hospitalization)
  Sender: FDA-Public Use
  Company Number: QSC-2013-0245

PATIENT
  Age: 65 Year
  Sex: Female

DRUGS (10)
  1. H.P. ACTHAR GEL [Suspect]
     Indication: NEPHROTIC SYNDROME
     Dosage: 80 UNITS
     Route: 058
     Dates: start: 20130407, end: 20130711
  2. ALLOPURINOL [Concomitant]
  3. BYSTOLIC [Concomitant]
  4. CALCITRIOL [Concomitant]
  5. CALCIUM CARBONATE W/VITAMIN D NOS [Concomitant]
  6. DOXAZOSIN [Concomitant]
  7. OMEPRAZOLE [Concomitant]
  8. PROCRIT [Concomitant]
  9. SPIRONOLACTONE [Concomitant]
  10. SYNTHROID [Concomitant]

REACTIONS (12)
  - Septic shock [None]
  - Hypotension [None]
  - Skin mass [None]
  - Local swelling [None]
  - Haemoglobin decreased [None]
  - Haematocrit decreased [None]
  - Immunosuppression [None]
  - Impaired healing [None]
  - Blood glucose increased [None]
  - Blood chloride decreased [None]
  - Blood potassium decreased [None]
  - Blood creatinine increased [None]
